FAERS Safety Report 8856919 (Version 1)
Quarter: 2012Q4

REPORT INFORMATION
  Report Type: Spontaneous
  Country: JP (occurrence: None)
  Receive Date: 20121019
  Receipt Date: 20121019
  Transmission Date: 20130627
  Serious: Yes (Other)
  Sender: FDA-Public Use
  Company Number: B0838691A

PATIENT

DRUGS (4)
  1. ABACAVIR SULPHATE [Suspect]
     Indication: HIV INFECTION
  2. TENOFOVIR (FORMULATION UNKNOWN) (TENOFOVIR) [Suspect]
  3. RITONAVIR [Suspect]
  4. RALTEGRAVIR [Suspect]

REACTIONS (3)
  - Maternal drugs affecting foetus [None]
  - Caesarean section [None]
  - Renal tubular disorder [None]
